FAERS Safety Report 17374342 (Version 2)
Quarter: 2020Q1

REPORT INFORMATION
  Report Type: Spontaneous
  Country: US (occurrence: US)
  Receive Date: 20200205
  Receipt Date: 20200309
  Transmission Date: 20200409
  Serious: No
  Sender: FDA-Public Use
  Company Number: US-PFIZER INC-2018483448

PATIENT
  Age: 68 Year
  Sex: Female
  Weight: 64.41 kg

DRUGS (2)
  1. IBRANCE [Suspect]
     Active Substance: PALBOCICLIB
     Indication: BREAST CANCER FEMALE
     Dosage: 125 MG, DAILY (28 DAY SUPPLY)
     Route: 048
     Dates: start: 2018, end: 2020
  2. LETROZOLE. [Suspect]
     Active Substance: LETROZOLE
     Indication: BREAST CANCER
     Dosage: 2.5 MG, DAILY
     Route: 048
     Dates: start: 2018, end: 201906

REACTIONS (3)
  - Diarrhoea [Unknown]
  - Joint stiffness [Recovering/Resolving]
  - Arthralgia [Recovering/Resolving]
